FAERS Safety Report 6678749-X (Version None)
Quarter: 2010Q2

REPORT INFORMATION
  Report Type: 
  Country: None (occurrence: None)
  Receive Date: 20100413
  Receipt Date: 20100405
  Transmission Date: 20101027
  Serious: Yes (Death, Hospitalization)
  Sender: FDA-Public Use
  Company Number: US-JNJFOC-20100401459

PATIENT
  Sex: Male
  Weight: 129.28 kg

DRUGS (1)
  1. REMICADE [Suspect]
     Indication: RHEUMATOID ARTHRITIS
     Dosage: STARTED IN MARCH OR APRIL 2009
     Route: 042

REACTIONS (8)
  - ASTHENIA [None]
  - CEREBROVASCULAR ACCIDENT [None]
  - DEATH [None]
  - GASTRIC BYPASS [None]
  - HOSPITALISATION [None]
  - PNEUMONIA [None]
  - PULMONARY FIBROSIS [None]
  - SEPSIS [None]
